FAERS Safety Report 16068959 (Version 1)
Quarter: 2019Q1

REPORT INFORMATION
  Report Type: Spontaneous
  Country: US (occurrence: US)
  Receive Date: 20190313
  Receipt Date: 20190313
  Transmission Date: 20190418
  Serious: No
  Sender: FDA-Public Use
  Company Number: US-SA-2019SA066339

PATIENT
  Age: 51 Year
  Sex: Female

DRUGS (2)
  1. TOUJEO [Suspect]
     Active Substance: INSULIN GLARGINE
     Dosage: 50 U, QD
     Route: 065
  2. TOUJEO [Suspect]
     Active Substance: INSULIN GLARGINE
     Indication: TYPE 2 DIABETES MELLITUS
     Dosage: 45 U, QD
     Route: 065
     Dates: start: 2018

REACTIONS (4)
  - Gastrooesophageal reflux disease [Unknown]
  - Device operational issue [Unknown]
  - Blood glucose increased [Unknown]
  - Nausea [Unknown]
